FAERS Safety Report 17847091 (Version 1)
Quarter: 2020Q2

REPORT INFORMATION
  Report Type: Spontaneous
  Country: US (occurrence: US)
  Receive Date: 20200601
  Receipt Date: 20200601
  Transmission Date: 20200714
  Serious: Yes (Other)
  Sender: FDA-Public Use
  Company Number: US-AZURITY PHARMACEUTICALS, INC.-2020SIL00031

PATIENT
  Age: 68 Year
  Sex: Male

DRUGS (1)
  1. VANCOMYCIN HYDROCHLORIDE. [Suspect]
     Active Substance: VANCOMYCIN HYDROCHLORIDE
     Indication: CELLULITIS STAPHYLOCOCCAL
     Route: 065

REACTIONS (2)
  - Nephritis [Recovered/Resolved]
  - Henoch-Schonlein purpura [Recovered/Resolved]
